FAERS Safety Report 23027336 (Version 4)
Quarter: 2024Q1

REPORT INFORMATION
  Report Type: Report from Study
  Country: CL (occurrence: CL)
  Receive Date: 20231004
  Receipt Date: 20240207
  Transmission Date: 20240410
  Serious: Yes (Hospitalization, Other)
  Sender: FDA-Public Use
  Company Number: CL-JNJFOC-20230967805

PATIENT
  Age: 67 Year
  Sex: Male

DRUGS (6)
  1. SIMPONI [Suspect]
     Active Substance: GOLIMUMAB
     Indication: Rheumatoid arthritis
     Dosage: LATEST ADMINISTRATION DATE: 17-JAN-2024
     Route: 058
     Dates: start: 20221111
  2. ACLASTA [Concomitant]
     Active Substance: ZOLEDRONIC ACID
  3. ACETAMINOPHEN [Concomitant]
     Active Substance: ACETAMINOPHEN
  4. QUETIAPINE [Concomitant]
     Active Substance: QUETIAPINE
  5. PREDNISONE [Concomitant]
     Active Substance: PREDNISONE
  6. TRAMADOL [Concomitant]
     Active Substance: TRAMADOL\TRAMADOL HYDROCHLORIDE

REACTIONS (8)
  - Pneumonia [Recovered/Resolved]
  - Nosocomial infection [Recovered/Resolved]
  - Spinal fracture [Not Recovered/Not Resolved]
  - Hypotension [Unknown]
  - Lacrimation increased [Not Recovered/Not Resolved]
  - Headache [Not Recovered/Not Resolved]
  - Malaise [Not Recovered/Not Resolved]
  - Arthritis [Not Recovered/Not Resolved]

NARRATIVE: CASE EVENT DATE: 20230101
